FAERS Safety Report 13690190 (Version 1)
Quarter: 2017Q2

REPORT INFORMATION
  Report Type: Spontaneous
  Country: US (occurrence: US)
  Receive Date: 20170623
  Receipt Date: 20170623
  Transmission Date: 20170830
  Serious: No
  Sender: FDA-Public Use
  Company Number: None

PATIENT
  Age: 68 Year
  Sex: Male

DRUGS (1)
  1. ZEPATIER [Suspect]
     Active Substance: ELBASVIR\GRAZOPREVIR

REACTIONS (8)
  - Rhinorrhoea [None]
  - Drug dose omission [None]
  - Eye irritation [None]
  - Multiple allergies [None]
  - Nausea [None]
  - Legal problem [None]
  - Fatigue [None]
  - Insomnia [None]

NARRATIVE: CASE EVENT DATE: 20170621
